FAERS Safety Report 19567948 (Version 2)
Quarter: 2021Q3

REPORT INFORMATION
  Report Type: Report from Study
  Country: US (occurrence: US)
  Receive Date: 20210716
  Receipt Date: 20210720
  Transmission Date: 20211014
  Serious: Yes (Hospitalization)
  Sender: FDA-Public Use
  Company Number: US-AGIOS-2107US02977

PATIENT

DRUGS (3)
  1. VENCLEXTA [Concomitant]
     Active Substance: VENETOCLAX
     Dosage: 100 MILLIGRAM, 2 TABLETS (200 MG), QD
     Route: 048
  2. HYDREA [Concomitant]
     Active Substance: HYDROXYUREA
  3. TIBSOVO [Suspect]
     Active Substance: IVOSIDENIB
     Indication: ACUTE MYELOID LEUKAEMIA
     Dosage: 250 MILLIGRAM, 2 TABLETS (500 MG), QD
     Route: 048
     Dates: start: 20210623

REACTIONS (3)
  - White blood cell count increased [Unknown]
  - White blood cell count decreased [Unknown]
  - Drug level increased [Unknown]
